FAERS Safety Report 22356906 (Version 1)
Quarter: 2023Q2

REPORT INFORMATION
  Report Type: Spontaneous
  Country: US (occurrence: US)
  Receive Date: 20230523
  Receipt Date: 20230523
  Transmission Date: 20230721
  Serious: No
  Sender: FDA-Public Use
  Company Number: US-GILEAD-2023-0628803

PATIENT
  Sex: Female

DRUGS (1)
  1. RANEXA [Suspect]
     Active Substance: RANOLAZINE
     Indication: Vascular graft
     Dosage: 500 MG, BID
     Route: 065

REACTIONS (5)
  - Expired product administered [Unknown]
  - Peripheral swelling [Unknown]
  - Peripheral swelling [Unknown]
  - Product dose omission issue [Unknown]
  - Asthenia [Unknown]
